FAERS Safety Report 8506273-8 (Version None)
Quarter: 2012Q3

REPORT INFORMATION
  Report Type: 
  Country: None (occurrence: None)
  Receive Date: 20120712
  Receipt Date: 20120706
  Transmission Date: 20120928
  Serious: Yes (Other)
  Sender: FDA-Public Use
  Company Number: DE-ABBOTT-12P-062-0953991-00

PATIENT
  Age: 25 Year
  Sex: Female
  Weight: 50 kg

DRUGS (7)
  1. HUMIRA [Suspect]
     Indication: CROHN'S DISEASE
     Route: 058
     Dates: start: 20100315, end: 20111201
  2. CREON [Concomitant]
     Indication: CROHN'S DISEASE
  3. HUMIRA [Suspect]
     Route: 058
     Dates: start: 20111201, end: 20120101
  4. VITAMIN TAB [Concomitant]
     Indication: CROHN'S DISEASE
  5. SULFASALAZINE [Concomitant]
     Indication: CROHN'S DISEASE
     Dates: end: 20120101
  6. HUMIRA [Suspect]
     Route: 058
     Dates: start: 20120201, end: 20120705
  7. HUMIRA [Suspect]
     Route: 058
     Dates: start: 20120705

REACTIONS (3)
  - ABSCESS [None]
  - ABSCESS SWEAT GLAND [None]
  - FISTULA [None]
